FAERS Safety Report 6237974-2 (Version None)
Quarter: 2009Q2

REPORT INFORMATION
  Report Type: 
  Country: None (occurrence: None)
  Receive Date: 20090622
  Receipt Date: 20090610
  Transmission Date: 20091009
  Serious: Yes (Death, Other)
  Sender: FDA-Public Use
  Company Number: ZA-RANBAXY-2009US-24791

PATIENT

DRUGS (3)
  1. ZIDOVUDINE [Suspect]
     Indication: DRUG USE FOR UNKNOWN INDICATION
     Dosage: 600 MG, UNK
     Route: 064
     Dates: start: 20081101
  2. LAMIVUDINE [Suspect]
     Indication: DRUG USE FOR UNKNOWN INDICATION
     Dosage: 300 MG, UNK
     Route: 064
     Dates: start: 20081101
  3. EFAVIRENZ [Suspect]
     Indication: DRUG USE FOR UNKNOWN INDICATION
     Dosage: 600MG, UNK
     Route: 064
     Dates: start: 20081101

REACTIONS (1)
  - STILLBIRTH [None]
